FAERS Safety Report 8485259-6 (Version None)
Quarter: 2012Q3

REPORT INFORMATION
  Report Type: 
  Country: None (occurrence: None)
  Receive Date: 20120703
  Receipt Date: 20120625
  Transmission Date: 20120928
  Serious: Yes (Other)
  Sender: FDA-Public Use
  Company Number: US-US-EMD SERONO, INC.-7143546

PATIENT
  Sex: Female

DRUGS (2)
  1. REBIF [Suspect]
     Indication: PRODUCT USED FOR UNKNOWN INDICATION
     Dates: start: 20061108, end: 20110513
  2. REBIF [Suspect]
     Route: 058
     Dates: start: 20111027

REACTIONS (2)
  - CHONDROPATHY [None]
  - ARTHRITIS [None]
